FAERS Safety Report 9984693 (Version 1)
Quarter: 2014Q1

REPORT INFORMATION
  Report Type: Spontaneous
  Country: US (occurrence: US)
  Receive Date: 20140307
  Receipt Date: 20140307
  Transmission Date: 20141002
  Serious: No
  Sender: FDA-Public Use
  Company Number: US-GLAXOSMITHKLINE-A1059632A

PATIENT
  Age: 85 Year
  Sex: Female

DRUGS (4)
  1. BREO ELLIPTA [Suspect]
     Indication: CHRONIC OBSTRUCTIVE PULMONARY DISEASE
     Dosage: 1PUFF PER DAY
     Route: 055
     Dates: start: 20140128
  2. SPIRIVA [Concomitant]
  3. COUMADIN [Concomitant]
  4. BIOTENE (UNSPECIFIED) [Concomitant]

REACTIONS (1)
  - Dry mouth [Not Recovered/Not Resolved]
